FAERS Safety Report 15061847 (Version 1)
Quarter: 2018Q3

REPORT INFORMATION
  Report Type: Spontaneous
  Country: ZA (occurrence: ZA)
  Receive Date: 20180625
  Receipt Date: 20180625
  Transmission Date: 20181010
  Serious: Yes (Death)
  Sender: FDA-Public Use
  Company Number: ZA-PFIZER INC-2018255626

PATIENT
  Age: 88 Year
  Sex: Female

DRUGS (11)
  1. SPERSALLERG (ANTAZOLINE\TETRYZOLINE) [Suspect]
     Active Substance: ANTAZOLINE\TETRAHYDROZOLINE
  2. SPIRACTIN /00006201/ [Suspect]
     Active Substance: SPIRONOLACTONE
  3. CARLOC [Suspect]
     Active Substance: CARVEDILOL
  4. PLENISH?K [Suspect]
     Active Substance: POTASSIUM CHLORIDE
  5. ECOTRIN [Suspect]
     Active Substance: ASPIRIN
  6. TEXA ALLERGY [Suspect]
     Active Substance: CETIRIZINE HYDROCHLORIDE
  7. CELEBREX [Suspect]
     Active Substance: CELECOXIB
  8. MONTE AIR [Suspect]
     Active Substance: MONTELUKAST SODIUM
  9. AVAMYS [Suspect]
     Active Substance: FLUTICASONE FUROATE
  10. FUROSEMIDE. [Suspect]
     Active Substance: FUROSEMIDE
  11. FOXAIR [Suspect]
     Active Substance: FLUTICASONE PROPIONATE\SALMETEROL XINAFOATE

REACTIONS (1)
  - Death [Fatal]

NARRATIVE: CASE EVENT DATE: 20180620
